FAERS Safety Report 18294596 (Version 4)
Quarter: 2020Q4

REPORT INFORMATION
  Report Type: Spontaneous
  Country: DE (occurrence: DE)
  Receive Date: 20200922
  Receipt Date: 20201203
  Transmission Date: 20210113
  Serious: Yes (Hospitalization, Other)
  Sender: FDA-Public Use
  Company Number: DE-PFIZER INC-2020363155

PATIENT
  Age: 75 Year
  Sex: Male

DRUGS (18)
  1. METFORMIN HYDROCHLORIDE. [Suspect]
     Active Substance: METFORMIN HYDROCHLORIDE
     Dosage: 1000 MG, 1-0-0-0
     Route: 065
  2. SALBUTAMOL [Concomitant]
     Active Substance: ALBUTEROL
     Dosage: NK MG, 3X
     Route: 065
  3. RAMIPRIL. [Suspect]
     Active Substance: RAMIPRIL
     Dosage: 5 MG, QD
     Route: 065
  4. TAMSULOSIN HYDROCHLORIDE. [Suspect]
     Active Substance: TAMSULOSIN HYDROCHLORIDE
     Dosage: 0.4 MG, QD (0-0-1-0)
     Route: 065
  5. LEVOTHYROXINE SODIUM. [Concomitant]
     Active Substance: LEVOTHYROXINE SODIUM
     Dosage: 100 UG, QD (1-0-0-0)
  6. ALLOPURINOL. [Concomitant]
     Active Substance: ALLOPURINOL
     Dosage: 300 MG, QD (0.5-0-0-0)
     Route: 065
  7. TORASEMIDE [Suspect]
     Active Substance: TORSEMIDE
     Dosage: 10 MG, QD
     Route: 065
  8. MIRTAZAPIN [Concomitant]
     Active Substance: MIRTAZAPINE
     Dosage: 15 MG, QD (0--0-0-0.5)
  9. STEGLUJAN [Concomitant]
     Active Substance: ERTUGLIFLOZIN PIDOLATE\SITAGLIPTIN PHOSPHATE
     Dosage: 5|100 MG, 1-0-0-0
  10. CARVEDILOL. [Suspect]
     Active Substance: CARVEDILOL
     Dosage: 12.5 MG, QD(2-0-0-0)
     Route: 065
  11. AMANTADINE. [Concomitant]
     Active Substance: AMANTADINE HYDROCHLORIDE
     Dosage: 100 MG, QD
     Route: 065
  12. PRAMIPEXOLE. [Concomitant]
     Active Substance: PRAMIPEXOLE
     Dosage: 3.15 MG, QD (1-0-0-0)
     Route: 065
  13. APIXABAN [Concomitant]
     Active Substance: APIXABAN
     Dosage: 5 MG, QD (1-0-1-0)
     Route: 065
  14. TORASEMIDE [Suspect]
     Active Substance: TORSEMIDE
     Dosage: 10 MG, Q8H (10 MG, 5-3-0-0 )
     Route: 065
  15. AMIODARONE HCL [Suspect]
     Active Substance: AMIODARONE HYDROCHLORIDE
     Dosage: 200 MG, QD
     Route: 065
  16. AIRFLUSAL [Suspect]
     Active Substance: FLUTICASONE FUROATE\SALMETEROL XINAFOATE
     Dosage: NK MG, 3X
     Route: 067
  17. FINASTERID [Concomitant]
     Active Substance: FINASTERIDE
     Dosage: 5 MG, QD
     Route: 065
  18. RASAGILIN [Concomitant]
     Active Substance: RASAGILINE MESYLATE
     Dosage: 1 MG, TID
     Route: 065

REACTIONS (4)
  - Bradycardia [Unknown]
  - Transaminases increased [Unknown]
  - Disease recurrence [Unknown]
  - Dyspnoea [Unknown]

NARRATIVE: CASE EVENT DATE: 20200522
